FAERS Safety Report 9422999 (Version 3)
Quarter: 2013Q3

REPORT INFORMATION
  Report Type: Spontaneous
  Country: US (occurrence: US)
  Receive Date: 20130726
  Receipt Date: 20130808
  Transmission Date: 20140515
  Serious: Yes (Other)
  Sender: FDA-Public Use
  Company Number: US-GLAXOSMITHKLINE-A0857290A

PATIENT
  Age: 40 Year
  Sex: Male

DRUGS (5)
  1. LAMOTRIGINE [Suspect]
     Indication: CONVULSION
     Dosage: 50MG TWICE PER DAY
     Route: 048
     Dates: start: 201001, end: 201002
  2. LAMICTAL [Suspect]
     Indication: CONVULSION
     Dosage: 150MG TWICE PER DAY
     Route: 048
     Dates: start: 2000
  3. MONOSODIUM GLUTAMATE [Suspect]
  4. ADDITIVES (UNSPECIFIED) [Suspect]
  5. NITRATES (UNSPECIFIED) [Suspect]

REACTIONS (9)
  - Convulsion [Unknown]
  - Amnesia [Unknown]
  - Gastric disorder [Unknown]
  - Feeling abnormal [Unknown]
  - Flight of ideas [Unknown]
  - Feeling abnormal [Unknown]
  - Insomnia [Recovered/Resolved]
  - Poor quality sleep [Recovered/Resolved]
  - Sleep disorder [Recovered/Resolved]
